FAERS Safety Report 21019079 (Version 1)
Quarter: 2022Q2

REPORT INFORMATION
  Report Type: Report from Study
  Country: US (occurrence: US)
  Receive Date: 20220628
  Receipt Date: 20220628
  Transmission Date: 20220720
  Serious: Yes (Other)
  Sender: FDA-Public Use
  Company Number: US-JAZZ-2022-US-002102

PATIENT
  Age: 60 Year
  Sex: Male

DRUGS (1)
  1. XYREM [Suspect]
     Active Substance: SODIUM OXYBATE
     Indication: Narcolepsy
     Dosage: 2.25 MILLIGRAM, BID
     Route: 048
     Dates: start: 202201, end: 202201

REACTIONS (4)
  - Nausea [Unknown]
  - Dizziness [Unknown]
  - Orthopaedic procedure [Unknown]
  - Constipation [Unknown]

NARRATIVE: CASE EVENT DATE: 20220101
